FAERS Safety Report 7282177-6 (Version None)
Quarter: 2011Q1

REPORT INFORMATION
  Report Type: 
  Country: None (occurrence: None)
  Receive Date: 20110209
  Receipt Date: 20110128
  Transmission Date: 20110831
  Serious: Yes (Hospitalization, Other)
  Sender: FDA-Public Use
  Company Number: US-BIOGENIDEC-2010BI010982

PATIENT
  Age: 64 Year
  Sex: Female
  Weight: 49 kg

DRUGS (4)
  1. BACLOFEN [Concomitant]
  2. PAIN MEDICATION (NOS) [Concomitant]
  3. TYSABRI [Suspect]
     Indication: MULTIPLE SCLEROSIS
     Route: 042
     Dates: start: 20090812
  4. MUSCLE RELAXER (NOS) [Concomitant]

REACTIONS (11)
  - HEADACHE [None]
  - RENAL FAILURE [None]
  - LUNG DISORDER [None]
  - JAW FRACTURE [None]
  - FACIAL BONES FRACTURE [None]
  - NAUSEA [None]
  - COUGH [None]
  - RENAL ATROPHY [None]
  - BLOOD POTASSIUM DECREASED [None]
  - FALL [None]
  - WEIGHT DECREASED [None]
